FAERS Safety Report 10132608 (Version 2)
Quarter: 2014Q2

REPORT INFORMATION
  Report Type: Spontaneous
  Country: US (occurrence: US)
  Receive Date: 20140428
  Receipt Date: 20140428
  Transmission Date: 20141212
  Serious: No
  Sender: FDA-Public Use
  Company Number: US-MALLINCKRODT-T201304179

PATIENT
  Age: 54 Year
  Sex: Male
  Weight: 68.27 kg

DRUGS (3)
  1. HYDROCODONE/ACETAMINOPHEN [Suspect]
     Indication: PAIN
     Dosage: 10/325, ONE TABLET  Q 4-6 HRS, USES TID
     Route: 048
     Dates: start: 201306
  2. SOMA [Concomitant]
     Indication: BREAKTHROUGH PAIN
     Dosage: UNK, PRN
     Route: 048
  3. LORAZEPAM [Concomitant]
     Indication: ANXIETY
     Dosage: UNK, PRN
     Route: 048

REACTIONS (1)
  - Muscle spasms [Recovering/Resolving]
